FAERS Safety Report 4843502-6 (Version None)
Quarter: 2005Q4

REPORT INFORMATION
  Report Type: 
  Country: None (occurrence: None)
  Receive Date: 20051202
  Receipt Date: 20051118
  Transmission Date: 20060501
  Serious: Yes (Other)
  Sender: FDA-Public Use
  Company Number: PHEH2005US12721

PATIENT
  Age: 8 Year
  Sex: Male

DRUGS (2)
  1. NEORAL [Suspect]
     Indication: LIVER TRANSPLANT
  2. ALBUTEROL [Concomitant]

REACTIONS (1)
  - PITUITARY TUMOUR BENIGN [None]
